FAERS Safety Report 23550531 (Version 1)
Quarter: 2024Q1

REPORT INFORMATION
  Report Type: Spontaneous
  Country: FR (occurrence: FR)
  Receive Date: 20240221
  Receipt Date: 20240221
  Transmission Date: 20240410
  Serious: Yes (Other)
  Sender: FDA-Public Use
  Company Number: FR-SAMSUNG BIOEPIS-SB-2023-32970

PATIENT
  Age: 51 Year
  Sex: Male

DRUGS (8)
  1. ADALIMUMAB [Suspect]
     Active Substance: ADALIMUMAB\ISOPROPYL ALCOHOL
     Indication: Sarcoidosis
     Dosage: 40.000MG BIW
     Route: 065
     Dates: start: 202210
  2. ADALIMUMAB [Suspect]
     Active Substance: ADALIMUMAB\ISOPROPYL ALCOHOL
     Dosage: 40.000MG
     Route: 065
     Dates: start: 202212
  3. INFLIXIMAB [Suspect]
     Active Substance: INFLIXIMAB
     Indication: Sarcoidosis
     Dosage: 5.000MG/KG
     Route: 065
  4. HYDROXYCHLOROQUINE SULFATE [Concomitant]
     Active Substance: HYDROXYCHLOROQUINE SULFATE
     Indication: Sarcoidosis
     Dosage: UNKNOWN
     Route: 065
     Dates: start: 202210
  5. AZATHIOPRINE SODIUM [Concomitant]
     Active Substance: AZATHIOPRINE SODIUM
     Indication: Sarcoidosis
     Dosage: 100.000MG QD
     Route: 065
  6. METHOTREXATE [Concomitant]
     Active Substance: METHOTREXATE
     Indication: Sarcoidosis
     Dosage: UNKNOWN
     Route: 065
  7. PAMIDRONATE [Concomitant]
     Active Substance: PAMIDRONATE DISODIUM
     Indication: Sarcoidosis
     Dosage: 60.000MG
     Route: 065
  8. PREDNISONE [Concomitant]
     Active Substance: PREDNISONE
     Indication: Sarcoidosis
     Dosage: 20.000MG QD
     Route: 065

REACTIONS (3)
  - Osteolysis [Unknown]
  - Hypercalcaemia [Unknown]
  - Off label use [Unknown]
